FAERS Safety Report 20613446 (Version 1)
Quarter: 2022Q1

REPORT INFORMATION
  Report Type: Spontaneous
  Country: US (occurrence: US)
  Receive Date: 20220319
  Receipt Date: 20220319
  Transmission Date: 20220423
  Serious: Yes (Death, Other)
  Sender: FDA-Public Use
  Company Number: US-ALVOGEN-2022-ALVOGEN-119119

PATIENT
  Age: 53 Year
  Sex: Male

DRUGS (4)
  1. AMPHETAMINE\DEXTROAMPHETAMINE [Suspect]
     Active Substance: AMPHETAMINE\DEXTROAMPHETAMINE
     Indication: Suicide attempt
  2. CLONIDINE [Suspect]
     Active Substance: CLONIDINE
     Indication: Suicide attempt
  3. BENZODIAZEPINE [Suspect]
     Active Substance: BENZODIAZEPINE
     Indication: Suicide attempt
  4. ALCOHOL [Suspect]
     Active Substance: ALCOHOL
     Indication: Suicide attempt

REACTIONS (1)
  - Completed suicide [Fatal]
